FAERS Safety Report 12646283 (Version 2)
Quarter: 2016Q4

REPORT INFORMATION
  Report Type: Spontaneous
  Country: US (occurrence: US)
  Receive Date: 20160812
  Receipt Date: 20161031
  Transmission Date: 20170207
  Serious: No
  Sender: FDA-Public Use
  Company Number: US-009507513-1607USA012392

PATIENT
  Age: 58 Year
  Sex: Male

DRUGS (3)
  1. VITAMINS (UNSPECIFIED) [Concomitant]
     Active Substance: VITAMINS
  2. NICOTINE. [Concomitant]
     Active Substance: NICOTINE
  3. SYLATRON [Suspect]
     Active Substance: PEGINTERFERON ALFA-2B
     Indication: MALIGNANT MELANOMA
     Dosage: 200 MICROGRAM, QW
     Route: 058
     Dates: start: 201601

REACTIONS (6)
  - Fatigue [Unknown]
  - Irritability [Unknown]
  - Blood count abnormal [Unknown]
  - Mood altered [Unknown]
  - Influenza like illness [Unknown]
  - Insomnia [Unknown]

NARRATIVE: CASE EVENT DATE: 201601
